FAERS Safety Report 7275447-9 (Version None)
Quarter: 2011Q1

REPORT INFORMATION
  Report Type: 
  Country: None (occurrence: None)
  Receive Date: 20110204
  Receipt Date: 20110202
  Transmission Date: 20110831
  Serious: Yes (Life-Threatening)
  Sender: FDA-Public Use
  Company Number: IT-ROCHE-757153

PATIENT
  Sex: Female

DRUGS (7)
  1. PEGINTERFERON ALFA-2A [Suspect]
     Indication: HEPATITIS C
     Route: 065
     Dates: start: 20100913, end: 20110131
  2. LANTUS [Concomitant]
     Dosage: DOSE: 40 UNITS; FREQUENCY: DIE.
  3. CITOFOLIN [Concomitant]
     Dosage: FREQUENCY: DIE.
     Dates: start: 20101022
  4. DOBETIN [Concomitant]
     Dosage: DOSE: 5000 UI; FREQUENCY: DIE.
     Dates: start: 20101022
  5. RIBAVIRIN [Suspect]
     Indication: HEPATITIS C
     Dosage: FREQUENCY: DIE.
     Route: 065
     Dates: start: 20100913, end: 20101230
  6. METFORMIN HCL [Concomitant]
     Dosage: FREQUENCY: DIE.
  7. HUMALOG [Concomitant]
     Dosage: DOSE: 78 UNITS; FREQUENCY: DIE.

REACTIONS (1)
  - CARDIAC FAILURE CONGESTIVE [None]
